FAERS Safety Report 8871857 (Version 1)
Quarter: 2012Q4

REPORT INFORMATION
  Report Type: 
  Country: US (occurrence: US)
  Receive Date: 20121026
  Receipt Date: 20121026
  Transmission Date: 20130627
  Serious: No
  Sender: FDA-Public Use
  Company Number: US-AMGEN-USASP2012048873

PATIENT
  Age: 39 Year
  Sex: Female
  Weight: 58.96 kg

DRUGS (4)
  1. ENBREL [Suspect]
     Indication: PRODUCT USED FOR UNKNOWN INDICATION
     Dosage: 50 mg, qwk
     Route: 058
  2. PREDNISONE [Concomitant]
     Dosage: 10 mg, UNK
  3. ALEVE [Concomitant]
     Dosage: 220 mg, UNK
  4. TYLENOL /00020001/ [Concomitant]
     Dosage: 500 mg, UNK

REACTIONS (2)
  - Influenza [Unknown]
  - Sinusitis [Unknown]
